FAERS Safety Report 23332007 (Version 3)
Quarter: 2024Q1

REPORT INFORMATION
  Report Type: Report from Study
  Country: CN (occurrence: CN)
  Receive Date: 20231222
  Receipt Date: 20240123
  Transmission Date: 20240410
  Serious: No
  Sender: FDA-Public Use
  Company Number: CN-PFIZER INC-PV202300204046

PATIENT
  Age: 60 Year
  Sex: Female

DRUGS (18)
  1. NIRMATRELVIR\RITONAVIR [Suspect]
     Active Substance: NIRMATRELVIR\RITONAVIR
     Indication: COVID-19
     Dosage: [NIRMATRELVIR 300MG]/[RITONAVIR 100MG], 2X/DAY (Q12H), Q12H
     Route: 048
     Dates: start: 20220428, end: 20220506
  2. NADROPARIN CALCIUM [Concomitant]
     Active Substance: NADROPARIN CALCIUM
     Dosage: INDICATION FOR MEDICAL HISTORY, NATRAPANN CALCIUM
     Route: 058
     Dates: start: 20220429, end: 20220507
  3. CETIRIZINE [Concomitant]
     Active Substance: CETIRIZINE HYDROCHLORIDE
     Indication: Hypersensitivity
     Dosage: UNK
     Route: 048
     Dates: start: 20220406, end: 20220507
  4. FENOFIBRATE [Concomitant]
     Active Substance: FENOFIBRATE
     Indication: Lipids increased
     Dosage: UNK
     Route: 048
     Dates: start: 20220426
  5. OLMESARTAN CILEXETIL [Concomitant]
     Dosage: INDICATION FOR MEDICAL HISTORY
     Route: 048
     Dates: start: 20220426
  6. AMMONIUM CHLORIDE/GLYCYRRHIZA GLABRA [Concomitant]
     Indication: COVID-19
     Dosage: AMMONIUM CHLORIDE LICORICE ORAL SOLUTION
     Route: 048
     Dates: start: 20220429
  7. AMMONIUM CHLORIDE/GLYCYRRHIZA GLABRA [Concomitant]
     Dosage: AMMONIUM CHLORIDE LICORICE ORAL SOLUTION
     Route: 048
     Dates: start: 20220502
  8. BEI SHA SHEN [Concomitant]
     Indication: COVID-19
     Dosage: UNK
  9. BEI SHA SHEN [Concomitant]
     Dosage: UNK
  10. CHI SHAO [Concomitant]
     Indication: COVID-19
  11. EPIMEDIUM SPP. [Concomitant]
     Indication: COVID-19
     Dosage: YIN YANG HUO
  12. BAN LAN GEN [Concomitant]
     Indication: COVID-19
     Dosage: UNK
  13. BAI SHU [CINNAMOMUM CAMPHORA LEAF WITH TWIG OIL;CINNAMOMUM SPP. OIL;EU [Concomitant]
     Indication: COVID-19
     Dosage: BAISHU(UNKNOWN INGREDIENTS)
  14. HUANG QIN [SCUTELLARIA BAICALENSIS ROOT] [Concomitant]
     Indication: COVID-19
     Dosage: HUANGQIN(UNKNOWN INGREDIENTS)
  15. JIN YIN HUA [LONICERA JAPONICA FLOWER BUD] [Concomitant]
     Indication: COVID-19
  16. HUANG QI [Concomitant]
     Indication: COVID-19
  17. FANG FENG [Concomitant]
     Indication: COVID-19
  18. HOU PU [Concomitant]
     Indication: COVID-19

REACTIONS (1)
  - Overdose [Unknown]
